FAERS Safety Report 8796187 (Version 2)
Quarter: 2012Q4

REPORT INFORMATION
  Report Type: 
  Country: US (occurrence: US)
  Receive Date: 20120919
  Receipt Date: 20121002
  Transmission Date: 20130627
  Serious: Yes (Death)
  Sender: FDA-Public Use
  Company Number: US-UCBSA-065975

PATIENT
  Age: 62 Year
  Sex: Female

DRUGS (15)
  1. METHYLPHENIDATE [Suspect]
     Dosage: IR TABLETS
     Route: 048
  2. ATENOLOL [Concomitant]
  3. FUROSEMIDE [Concomitant]
  4. MORPHINE [Concomitant]
  5. POTASSIUM CHLORIDE [Concomitant]
  6. ACYCLOVIR [Concomitant]
  7. DULOXETINE [Concomitant]
  8. GABAPENTIN [Concomitant]
  9. LEVABUTEROL [Concomitant]
  10. LEVOTHYROXINE [Concomitant]
  11. OXYCODONE/APAP [Concomitant]
  12. CONJUGATED ESTROGENS [Concomitant]
  13. PROCHLORPERAZINE [Concomitant]
  14. RANITIDINE [Concomitant]
  15. TRAZODONE [Concomitant]

REACTIONS (2)
  - Suicide attempt [Fatal]
  - Overdose [Fatal]
